FAERS Safety Report 21642683 (Version 1)
Quarter: 2022Q4

REPORT INFORMATION
  Report Type: Spontaneous
  Country: GB (occurrence: None)
  Receive Date: 20221125
  Receipt Date: 20221125
  Transmission Date: 20230112
  Serious: Yes (Hospitalization)
  Sender: FDA-Public Use
  Company Number: GB-MHRA-MED-202211151610507080-YCKTB

PATIENT
  Age: 8 Year
  Sex: Female
  Weight: 29 kg

DRUGS (8)
  1. LEVETIRACETAM [Suspect]
     Active Substance: LEVETIRACETAM
     Dosage: 500MG TWICE A DAY
  2. VALPROATE SODIUM [Suspect]
     Active Substance: VALPROATE SODIUM
     Dosage: 280MG TWICE A DAY
  3. BACLOFEN [Concomitant]
     Active Substance: BACLOFEN
  4. CLONIDINE [Concomitant]
     Active Substance: CLONIDINE
  5. DIAZEPAM [Concomitant]
     Active Substance: DIAZEPAM
  6. MELATONIN [Concomitant]
     Active Substance: MELATONIN
  7. OMEPRAZOLE [Concomitant]
     Active Substance: OMEPRAZOLE
  8. SYTRON [Concomitant]

REACTIONS (1)
  - Rhabdomyolysis [Recovering/Resolving]
